FAERS Safety Report 9814554 (Version 2)
Quarter: 2014Q1

REPORT INFORMATION
  Report Type: Spontaneous
  Country: PL (occurrence: PL)
  Receive Date: 20140113
  Receipt Date: 20140205
  Transmission Date: 20141002
  Serious: Yes (Death, Life-Threatening)
  Sender: FDA-Public Use
  Company Number: PL-BAXTER-2014BAX001281

PATIENT
  Sex: Male

DRUGS (5)
  1. EXTRANEAL ZESTAW DO DIALIZY OTRZEWNOWEJ [Suspect]
     Indication: PERITONEAL DIALYSIS
     Route: 033
  2. EXTRANEAL ZESTAW DO DIALIZY OTRZEWNOWEJ [Suspect]
     Indication: PERITONEAL DIALYSIS
  3. PREDNISONE [Suspect]
     Indication: IMMUNOSUPPRESSION
     Route: 065
  4. TACROLIMUS [Suspect]
     Indication: IMMUNOSUPPRESSION
     Route: 065
  5. MYCOPHENOLATE MOFETIL [Suspect]
     Indication: IMMUNOSUPPRESSION
     Route: 065

REACTIONS (3)
  - Peritonitis [Fatal]
  - Sepsis [Fatal]
  - Sclerosing encapsulating peritonitis [Unknown]
